FAERS Safety Report 13565895 (Version 7)
Quarter: 2018Q2

REPORT INFORMATION
  Report Type: Other
  Country: GB (occurrence: GB)
  Receive Date: 20170520
  Receipt Date: 20180414
  Transmission Date: 20180711
  Serious: Yes (Other)
  Sender: FDA-Public Use
  Company Number: GB-MACLEODS PHARMACEUTICALS US LTD-MAC2017005022

PATIENT

DRUGS (17)
  1. NEBIVOLOL. [Suspect]
     Active Substance: NEBIVOLOL
     Dosage: UNK, TABLET
     Route: 048
  2. FABRAZYME [Suspect]
     Active Substance: AGALSIDASE BETA
     Dosage: 50 MG, EVERY 2 WEEK, POWDER FOR SOLUTION FOR INFUSION
     Route: 041
  3. FABRAZYME [Suspect]
     Active Substance: AGALSIDASE BETA
     Indication: PRODUCT USED FOR UNKNOWN INDICATION
     Dosage: 50 MG, ONCE IN 2 WEEK ( 50MG (GIVEN AS 35MG + 15MG), FORTNIGHTLY35MG - C578H24, 30/11/201 8;15MG )C5
     Route: 041
     Dates: end: 20170420
  4. LYRICA [Suspect]
     Active Substance: PREGABALIN
     Indication: PRODUCT USED FOR UNKNOWN INDICATION
     Dosage: 75 MG, BID (150 QD)
     Route: 065
  5. COLECALCIFEROL [Suspect]
     Active Substance: CHOLECALCIFEROL
     Indication: PRODUCT USED FOR UNKNOWN INDICATION
     Dosage: DOSE: 800 UNIT, QD
     Route: 048
  6. LANSOPRAZOLE. [Suspect]
     Active Substance: LANSOPRAZOLE
     Indication: PRODUCT USED FOR UNKNOWN INDICATION
     Dosage: 30 MG, QD
     Route: 048
  7. PERINDOPRIL [Suspect]
     Active Substance: PERINDOPRIL
     Indication: PRODUCT USED FOR UNKNOWN INDICATION
     Dosage: 4 MG, QD, TABLET
     Route: 048
  8. PARACETAMOL, CODEINE [Suspect]
     Active Substance: ACETAMINOPHEN\CODEINE PHOSPHATE
     Indication: PRODUCT USED FOR UNKNOWN INDICATION
     Dosage: 4 DF, QD
     Route: 048
  9. ASPIRIN. [Suspect]
     Active Substance: ASPIRIN
     Indication: PRODUCT USED FOR UNKNOWN INDICATION
     Dosage: 75 MG, QD
     Route: 065
  10. NEBIVOLOL. [Suspect]
     Active Substance: NEBIVOLOL
     Indication: BLOOD PRESSURE MEASUREMENT
     Dosage: 2.5 MG, QD, TABLET
     Route: 048
  11. AMIODARONE [Suspect]
     Active Substance: AMIODARONE
     Indication: PRODUCT USED FOR UNKNOWN INDICATION
     Dosage: 200 MG, QD, POWDER FOR SOLUTION FOR INFUSION
     Route: 065
  12. CITALOPRAM [Suspect]
     Active Substance: CITALOPRAM HYDROBROMIDE
     Indication: PRODUCT USED FOR UNKNOWN INDICATION
     Dosage: 10 MG, QD, TABLET
     Route: 048
  13. FABRAZYME [Suspect]
     Active Substance: AGALSIDASE BETA
     Dosage: POWDER FOR SOLUTION FOR INFUSION
     Route: 041
  14. SALBUTAMOL SULFATE [Suspect]
     Active Substance: ALBUTEROL SULFATE
     Indication: COUGH
     Dosage: 2 DF, QD, 1*/DAY, (2 PUFF ONCE DAILY)
     Route: 055
  15. COCODAMOL [Suspect]
     Active Substance: ACETAMINOPHEN\CODEINE PHOSPHATE
     Indication: PRODUCT USED FOR UNKNOWN INDICATION
     Dosage: 4 DF, QID (30/500MG,QID )
     Route: 065
  16. CLOPIDOGREL [Suspect]
     Active Substance: CLOPIDOGREL BISULFATE
     Indication: PRODUCT USED FOR UNKNOWN INDICATION
     Dosage: 75 MG, QD
     Route: 048
  17. FULTIUM-D3 [Suspect]
     Active Substance: CHOLECALCIFEROL
     Indication: PRODUCT USED FOR UNKNOWN INDICATION
     Dosage: 800 IU, QD
     Route: 065

REACTIONS (3)
  - Wheezing [Unknown]
  - Lower respiratory tract infection [Unknown]
  - Cough [Recovered/Resolved]
